FAERS Safety Report 19256958 (Version 1)
Quarter: 2021Q2

REPORT INFORMATION
  Report Type: Spontaneous
  Country: US (occurrence: US)
  Receive Date: 20210513
  Receipt Date: 20210513
  Transmission Date: 20210717
  Serious: No
  Sender: FDA-Public Use
  Company Number: US-BAUSCH-BL-2021-012421

PATIENT
  Age: 71 Year
  Sex: Female

DRUGS (1)
  1. TOBRAMYCIN AND DEXAMETHASONE [Suspect]
     Active Substance: DEXAMETHASONE\TOBRAMYCIN
     Indication: PREOPERATIVE CARE
     Dosage: STRENGTH: TOBRAMYCIN: 0.3% AND DEXAMETHASONE 0.1%?1 DROP IN THE RIGHT EYE
     Route: 047
     Dates: start: 20210321, end: 20210331

REACTIONS (4)
  - Eye pain [Recovered/Resolved]
  - Eye swelling [Recovered/Resolved]
  - Eyelids pruritus [Recovered/Resolved]
  - Rash papular [Not Recovered/Not Resolved]

NARRATIVE: CASE EVENT DATE: 20210324
